FAERS Safety Report 9415381 (Version 1)
Quarter: 2013Q3

REPORT INFORMATION
  Report Type: Spontaneous
  Country: US (occurrence: US)
  Receive Date: 20130723
  Receipt Date: 20130723
  Transmission Date: 20140515
  Serious: No
  Sender: FDA-Public Use
  Company Number: US-B.I. PHARMACEUTICALS,INC./RIDGEFIELD-2013-BI-21504BP

PATIENT
  Sex: Female
  Weight: 150 kg

DRUGS (17)
  1. SPIRIVA [Suspect]
     Indication: CHRONIC OBSTRUCTIVE PULMONARY DISEASE
     Dosage: 18 MCG
     Route: 055
  2. LORATADINE [Concomitant]
     Dosage: 10 MG
     Route: 048
  3. CITRICAL WITH VITAMIN D [Concomitant]
     Indication: BLOOD CALCIUM ABNORMAL
  4. LASIX [Concomitant]
     Indication: OEDEMA PERIPHERAL
     Dosage: 80 MG
     Route: 048
  5. SKELAXIN [Concomitant]
     Indication: PAIN
     Dosage: 2400 MG
     Route: 048
  6. DIAZEPAM [Concomitant]
     Indication: NERVOUS SYSTEM DISORDER
     Dosage: 15 MG
     Route: 048
  7. LEVOTHYROXINE [Concomitant]
     Indication: HYPOTHYROIDISM
     Dosage: 224 MCG
     Route: 048
  8. POTASSIUM [Concomitant]
     Indication: MINERAL SUPPLEMENTATION
     Dosage: 20 MEQ
     Route: 048
  9. CENTRUM SILVER [Concomitant]
     Indication: SUPPLEMENTATION THERAPY
     Dosage: 1 ANZ
     Route: 048
  10. SYMBICORT [Concomitant]
     Indication: CHRONIC OBSTRUCTIVE PULMONARY DISEASE
     Dosage: (INHALATION AEROSOL) STRENGTH: 160/4.5; DAILY DOSE: 640/18
     Route: 055
  11. LISINOPRIL [Concomitant]
     Indication: HYPERTENSION
     Dosage: 60 MG
     Route: 048
  12. ATENOLOL [Concomitant]
     Indication: HYPERTENSION
     Dosage: 100 MG
     Route: 048
  13. ALBUTEROL NEBULIZER [Concomitant]
     Indication: CHRONIC OBSTRUCTIVE PULMONARY DISEASE
     Route: 055
  14. VENTOLIN [Concomitant]
     Indication: CHRONIC OBSTRUCTIVE PULMONARY DISEASE
     Route: 055
  15. PRAVASTATIN [Concomitant]
     Indication: BLOOD CHOLESTEROL INCREASED
     Dosage: 20 MG
     Route: 048
  16. OXYCODONE [Concomitant]
     Indication: PAIN
     Dosage: 60 MG
     Route: 048
  17. NEXIUM [Concomitant]
     Indication: GASTROOESOPHAGEAL REFLUX DISEASE
     Dosage: 40 MG
     Route: 048

REACTIONS (2)
  - Dyspnoea [Recovered/Resolved]
  - Product quality issue [Unknown]
